FAERS Safety Report 23512486 (Version 1)
Quarter: 2024Q1

REPORT INFORMATION
  Report Type: Spontaneous
  Country: GB (occurrence: GB)
  Receive Date: 20240212
  Receipt Date: 20240212
  Transmission Date: 20240410
  Serious: Yes (Other)
  Sender: FDA-Public Use
  Company Number: None

PATIENT
  Age: 81 Year
  Sex: Female

DRUGS (1)
  1. CIPROFLOXACIN [Suspect]
     Active Substance: CIPROFLOXACIN
     Indication: Pseudomonas infection
     Dates: start: 20240111, end: 20240116

REACTIONS (3)
  - Tendon rupture [Recovering/Resolving]
  - Arthralgia [None]
  - Contusion [None]

NARRATIVE: CASE EVENT DATE: 20240115
